FAERS Safety Report 5946624-1 (Version None)
Quarter: 2008Q4

REPORT INFORMATION
  Report Type: 
  Country: None (occurrence: None)
  Receive Date: 20081110
  Receipt Date: 20081030
  Transmission Date: 20090506
  Serious: Yes (Death, Life-Threatening, Hospitalization)
  Sender: FDA-Public Use
  Company Number: BR-ROCHE-584872

PATIENT
  Sex: Female
  Weight: 57 kg

DRUGS (2)
  1. CAPECITABINE [Suspect]
     Indication: BREAST CANCER METASTATIC
     Route: 048
     Dates: start: 20080711, end: 20080724
  2. LOPERAMIDE HCL [Concomitant]
     Route: 048
     Dates: start: 20080712

REACTIONS (5)
  - DIARRHOEA [None]
  - FEBRILE NEUTROPENIA [None]
  - HYPOTENSION [None]
  - MUCOSAL INFLAMMATION [None]
  - SEPTIC SHOCK [None]
